FAERS Safety Report 7627353-5 (Version None)
Quarter: 2011Q3

REPORT INFORMATION
  Report Type: 
  Country: None (occurrence: None)
  Receive Date: 20110721
  Receipt Date: 20110708
  Transmission Date: 20111222
  Serious: Yes (Hospitalization, Other)
  Sender: FDA-Public Use
  Company Number: US-ELI_LILLY_AND_COMPANY-US201008002522

PATIENT
  Sex: Female

DRUGS (9)
  1. ANTI-HYPERTENSIVE AGENT [Concomitant]
     Dosage: UNK, UNK
  2. FORTEO [Suspect]
     Indication: OSTEOPOROSIS
     Dosage: 20 UG, DAILY (1/D)
  3. PREDNISONE [Concomitant]
     Dosage: UNK, UNK
  4. PRILOSEC [Concomitant]
     Indication: GASTROOESOPHAGEAL REFLUX DISEASE
  5. FORTEO [Suspect]
     Dosage: 20 UG, QD
     Dates: start: 20101201
  6. ARAVA [Concomitant]
     Indication: RHEUMATOID ARTHRITIS
     Dosage: UNK, UNK
  7. SYNTHROID [Concomitant]
     Dosage: UNK, UNK
  8. FERROUS SULFATE TAB [Concomitant]
  9. PLAQUENIL [Concomitant]
     Indication: RHEUMATOID ARTHRITIS

REACTIONS (13)
  - FEMUR FRACTURE [None]
  - LIMB DISCOMFORT [None]
  - SURGERY [None]
  - BLOOD PRESSURE INCREASED [None]
  - IMPAIRED HEALING [None]
  - OEDEMA PERIPHERAL [None]
  - FALL [None]
  - STAPHYLOCOCCAL INFECTION [None]
  - GAIT DISTURBANCE [None]
  - PELVIC FRACTURE [None]
  - PAIN IN EXTREMITY [None]
  - ARTHRALGIA [None]
  - UPPER LIMB FRACTURE [None]
